FAERS Safety Report 22027548 (Version 1)
Quarter: 2023Q1

REPORT INFORMATION
  Report Type: Spontaneous
  Country: US (occurrence: None)
  Receive Date: 20230220
  Receipt Date: 20230220
  Transmission Date: 20230417
  Serious: No
  Sender: FDA-Public Use
  Company Number: None

PATIENT
  Age: 72 Year
  Sex: Female
  Weight: 62.1 kg

DRUGS (9)
  1. LATANOPROST [Suspect]
     Active Substance: LATANOPROST
     Indication: Glaucoma
     Dosage: FREQUENCY : AT BEDTIME;?
     Route: 047
     Dates: start: 20230215, end: 20230216
  2. DEVICE [Concomitant]
     Active Substance: DEVICE
  3. MELOXICAM [Concomitant]
     Active Substance: MELOXICAM
  4. Vaginal estradiol [Concomitant]
  5. MINERALS\VITAMINS [Concomitant]
     Active Substance: MINERALS\VITAMINS
  6. VITAMIN D3 [Concomitant]
     Active Substance: CHOLECALCIFEROL
  7. CALCIUM\MAGNESIUM [Concomitant]
     Active Substance: CALCIUM\MAGNESIUM
  8. COENZYME Q10 [Concomitant]
     Active Substance: DIETARY SUPPLEMENT\UBIDECARENONE
  9. Gen Teal lubricant eyedrops [Concomitant]

REACTIONS (5)
  - Headache [None]
  - Photophobia [None]
  - Facial pain [None]
  - Ocular discomfort [None]
  - Visual impairment [None]

NARRATIVE: CASE EVENT DATE: 20230216
